FAERS Safety Report 15992595 (Version 3)
Quarter: 2019Q1

REPORT INFORMATION
  Report Type: Spontaneous
  Country: US (occurrence: US)
  Receive Date: 20190221
  Receipt Date: 20190325
  Transmission Date: 20190418
  Serious: Yes (Other)
  Sender: FDA-Public Use
  Company Number: US-ACTELION-A-US2019-186429

PATIENT
  Sex: Female
  Weight: 81.63 kg

DRUGS (4)
  1. OXYGEN. [Concomitant]
     Active Substance: OXYGEN
  2. OPSUMIT [Suspect]
     Active Substance: MACITENTAN
     Indication: PULMONARY HYPERTENSION
     Dosage: 10 MG, QD
     Route: 048
  3. COUMADIN [Concomitant]
     Active Substance: WARFARIN SODIUM
  4. AMLODIPINE [Concomitant]
     Active Substance: AMLODIPINE BESYLATE

REACTIONS (8)
  - Hypophagia [Unknown]
  - Fatigue [Unknown]
  - Drug effect delayed [Unknown]
  - Pain [Unknown]
  - Dyspnoea [Unknown]
  - Insomnia [Unknown]
  - Bedridden [Recovered/Resolved]
  - Bladder cancer [Unknown]
